FAERS Safety Report 7008709-0 (Version None)
Quarter: 2010Q3

REPORT INFORMATION
  Report Type: 
  Country: None (occurrence: None)
  Receive Date: 20100921
  Receipt Date: 20100912
  Transmission Date: 20110219
  Serious: Yes (Hospitalization, Other)
  Sender: FDA-Public Use
  Company Number: A-US2010-39193

PATIENT
  Age: 50 Year
  Sex: Male

DRUGS (8)
  1. VENTAVIS [Suspect]
     Indication: PULMONARY ARTERIAL HYPERTENSION
     Dosage: 5 UG, 6 X DAY, RESPIRATORY
     Route: 055
     Dates: start: 20090723
  2. MARCUMAR [Concomitant]
  3. TORSEMIDE [Concomitant]
  4. SPIRONOLACTONE [Concomitant]
  5. ALLOPURINOL [Concomitant]
  6. PANTOPRAZOLE SODIUM [Concomitant]
  7. RANITIDINE HCL [Concomitant]
  8. PARACETAMOL [Concomitant]

REACTIONS (3)
  - GAIT DISTURBANCE [None]
  - HEAD INJURY [None]
  - SUBARACHNOID HAEMORRHAGE [None]
